FAERS Safety Report 8309128-7 (Version None)
Quarter: 2012Q2

REPORT INFORMATION
  Report Type: 
  Country: None (occurrence: None)
  Receive Date: 20120424
  Receipt Date: 20120420
  Transmission Date: 20120825
  Serious: Yes (Other)
  Sender: FDA-Public Use
  Company Number: GXKR2012DE001530

PATIENT

DRUGS (3)
  1. SERTRALINE HYDROCHLORIDE [Suspect]
     Indication: DEPRESSION
     Dosage: DAILY DOSE: 50 MG MILLIGRAM(S) EVERY DAY
     Route: 048
     Dates: start: 20120320, end: 20120408
  2. MIRTAZAPINE [Suspect]
     Indication: DEPRESSION
     Dosage: DAILY DOSE: 7.5 MG MILLIGRAM(S) EVERY DAY
     Route: 048
     Dates: start: 20120320, end: 20120408
  3. CONTRACEPTIVES [Concomitant]
     Route: 048

REACTIONS (3)
  - DIARRHOEA [None]
  - BREAST DISCOMFORT [None]
  - DIZZINESS [None]
